FAERS Safety Report 4629999-5 (Version None)
Quarter: 2005Q2

REPORT INFORMATION
  Report Type: 
  Country: None (occurrence: None)
  Receive Date: 20050408
  Receipt Date: 20050330
  Transmission Date: 20051028
  Serious: Yes (Other)
  Sender: FDA-Public Use
  Company Number: US-BRISTOL-MYERS SQUIBB COMPANY-12917175

PATIENT
  Sex: Male

DRUGS (1)
  1. SERZONE [Suspect]
     Dates: start: 20020711, end: 20030605

REACTIONS (3)
  - DEPRESSION [None]
  - HEPATIC FAILURE [None]
  - ULCER [None]
